FAERS Safety Report 23709102 (Version 1)
Quarter: 2024Q2

REPORT INFORMATION
  Report Type: Spontaneous
  Country: NL (occurrence: NL)
  Receive Date: 20240404
  Receipt Date: 20240404
  Transmission Date: 20240716
  Serious: Yes (Death, Other)
  Sender: FDA-Public Use
  Company Number: NL-ASPEN-GLO2018NL012530

PATIENT
  Age: 19 Year
  Sex: Male

DRUGS (8)
  1. PROPOFOL [Suspect]
     Active Substance: PROPOFOL
     Indication: Seizure
     Dosage: FORM OF ADMIN: UNKNOWN
     Route: 065
  2. LEVETIRACETAM [Suspect]
     Active Substance: LEVETIRACETAM
     Indication: Seizure
     Route: 065
  3. MIDAZOLAM [Suspect]
     Active Substance: MIDAZOLAM
     Indication: Sedation
  4. MIDAZOLAM [Suspect]
     Active Substance: MIDAZOLAM
     Indication: Seizure
     Dosage: UNK?FOA: UNKNOWN
     Route: 065
  5. THIOPENTAL [Suspect]
     Active Substance: THIOPENTAL
     Indication: Seizure
     Route: 065
  6. PHENYTOIN [Suspect]
     Active Substance: PHENYTOIN
     Indication: Seizure
     Dosage: UNK
     Route: 065
  7. VALPROATE [Suspect]
     Active Substance: VALPROIC ACID
     Indication: Seizure
     Route: 065
  8. REMIFENTANIL HYDROCHLORIDE [Suspect]
     Active Substance: REMIFENTANIL HYDROCHLORIDE
     Indication: Sedative therapy
     Dosage: FOA: UNKNOWN
     Route: 065

REACTIONS (4)
  - Status epilepticus [Fatal]
  - Diabetes insipidus [Fatal]
  - Off label use [Fatal]
  - Drug ineffective [Fatal]
